FAERS Safety Report 7469165-1 (Version None)
Quarter: 2011Q2

REPORT INFORMATION
  Report Type: 
  Country: None (occurrence: None)
  Receive Date: 20110510
  Receipt Date: 20110404
  Transmission Date: 20111010
  Serious: Yes (Hospitalization, Disabling, Other)
  Sender: FDA-Public Use
  Company Number: US-BAYER-201029734NA

PATIENT
  Age: 32 Year
  Sex: Female
  Weight: 77.098 kg

DRUGS (8)
  1. YASMIN [Suspect]
     Indication: ACNE
     Dates: start: 20070401, end: 20070629
  2. TOPIRAMATE [Concomitant]
     Dosage: UNK
     Dates: start: 20060101
  3. YAZ [Suspect]
     Indication: ACNE
  4. TOPAMAX [Concomitant]
     Dosage: UNK
     Dates: start: 20060101
  5. STACKER [Concomitant]
  6. SOTRET [Concomitant]
     Dosage: UNK
     Dates: start: 20070611
  7. ACCUTANE [Concomitant]
     Indication: ACNE
     Dosage: UNK UNK, BID
     Route: 048
     Dates: start: 20070411, end: 20070911
  8. SOLODYN [Concomitant]
     Dosage: UNK
     Dates: start: 20060620, end: 20070319

REACTIONS (8)
  - DYSPNOEA [None]
  - DEEP VEIN THROMBOSIS [None]
  - WEIGHT INCREASED [None]
  - OEDEMA PERIPHERAL [None]
  - PAIN IN EXTREMITY [None]
  - PULMONARY EMBOLISM [None]
  - INSOMNIA [None]
  - ASTHENIA [None]
